FAERS Safety Report 9843600 (Version 1)
Quarter: 2013Q4

REPORT INFORMATION
  Report Type: Spontaneous
  Country: US (occurrence: None)
  Receive Date: 20131219
  Receipt Date: 20131219
  Transmission Date: 20140711
  Serious: Yes (Death)
  Sender: FDA-Public Use
  Company Number: 163-20785-13030930

PATIENT
  Age: 56 Year
  Sex: Female
  Weight: 113.4 kg

DRUGS (7)
  1. THALOMID (THALIDOMIDE) (50 MILLIGRAM, CAPSULES) [Suspect]
     Indication: MYELOFIBROSIS
     Route: 048
     Dates: start: 20121102, end: 2013
  2. DIPHENHYDRAMINE(DIPHENHYDRAMINE)(UNKNOWN) [Concomitant]
  3. BETAMETHASONE/CLOTRIMAZOLE(LOTRISONE)(LOTION (NOT FOR OPHTHALMIC USE)) [Concomitant]
  4. DEFERASIROX(DEFERASIROX)(500 MILLIGRAM, TABLETS) [Concomitant]
  5. METFORMIN(METFORMIN)(UNKNOWN) [Concomitant]
  6. PREDNISONE(PREDNISONE)(UNKNOWN) [Concomitant]
  7. SERTRALINE(SERTRALINE) (UNKNOWN) [Concomitant]

REACTIONS (1)
  - Death [None]
